FAERS Safety Report 23298979 (Version 1)
Quarter: 2023Q4

REPORT INFORMATION
  Report Type: Report from Study
  Country: US (occurrence: US)
  Receive Date: 20231215
  Receipt Date: 20231215
  Transmission Date: 20240110
  Serious: Yes (Hospitalization, Other)
  Sender: FDA-Public Use
  Company Number: US-ABBVIE-5471630

PATIENT
  Age: 74 Year
  Sex: Male

DRUGS (2)
  1. HUMIRA [Suspect]
     Active Substance: ADALIMUMAB
     Indication: Product used for unknown indication
     Route: 058
     Dates: start: 20190730
  2. HUMIRA [Suspect]
     Active Substance: ADALIMUMAB
     Route: 058
     Dates: start: 20131020

REACTIONS (7)
  - Obstruction [Unknown]
  - Limb mass [Not Recovered/Not Resolved]
  - Arthritis [Unknown]
  - Weight decreased [Unknown]
  - Drug ineffective [Unknown]
  - Mass [Unknown]
  - Pain [Unknown]

NARRATIVE: CASE EVENT DATE: 20230101
